FAERS Safety Report 10432669 (Version 3)
Quarter: 2014Q4

REPORT INFORMATION
  Report Type: Spontaneous
  Country: DE (occurrence: None)
  Receive Date: 20140902
  Receipt Date: 20141105
  Transmission Date: 20150528
  Serious: Yes (Hospitalization, Other)
  Sender: FDA-Public Use
  Company Number: 2014-19329

PATIENT
  Age: 75 Year
  Sex: Male

DRUGS (1)
  1. EYLEA [Suspect]
     Active Substance: AFLIBERCEPT
     Indication: AGE-RELATED MACULAR DEGENERATION
     Route: 031
     Dates: start: 20140318

REACTIONS (7)
  - Ocular discomfort [None]
  - Anterior chamber cell [None]
  - Vitreous opacities [None]
  - Retinal haemorrhage [None]
  - Eye irritation [None]
  - Blindness [None]
  - Choroidal neovascularisation [None]

NARRATIVE: CASE EVENT DATE: 20140321
